FAERS Safety Report 8415329 (Version 2)
Quarter: 2013Q1

REPORT INFORMATION
  Report Type: Spontaneous
  Country: US (occurrence: US)
  Receive Date: 20120218
  Receipt Date: 20130119
  Transmission Date: 20140127
  Serious: No
  Sender: FDA-Public Use
  Company Number: US-ALLERGAN-1110349US

PATIENT
  Age: 63 Year
  Sex: Male

DRUGS (1)
  1. BOTOX COSMETIC [Suspect]
     Indication: SKIN WRINKLING
     Dosage: 67.5 UNITS, SINGLE
     Route: 030
     Dates: start: 20110727, end: 20110727

REACTIONS (4)
  - Influenza like illness [Recovered/Resolved]
  - Muscular weakness [Unknown]
  - Abdominal discomfort [Recovered/Resolved]
  - Diarrhoea [Recovered/Resolved]
